FAERS Safety Report 9178920 (Version 2)
Quarter: 2013Q3

REPORT INFORMATION
  Report Type: Report from Study
  Country: US (occurrence: US)
  Receive Date: 20130321
  Receipt Date: 20130807
  Transmission Date: 20140515
  Serious: Yes (Other)
  Sender: FDA-Public Use
  Company Number: US-ASTRAZENECA-2010SE40864

PATIENT
  Age: 68 Year
  Sex: Female

DRUGS (3)
  1. ATACAND [Suspect]
     Indication: HYPERTENSION
     Route: 048
  2. ATACAND [Suspect]
     Indication: HYPERTENSION
     Route: 048
     Dates: start: 201307
  3. ATACAND [Suspect]
     Indication: HYPERTENSION
     Route: 048

REACTIONS (5)
  - Coma [Unknown]
  - Accident [Unknown]
  - Nervousness [Unknown]
  - Blood pressure increased [Recovered/Resolved]
  - Drug ineffective [Unknown]
